FAERS Safety Report 5385553-1 (Version None)
Quarter: 2007Q3

REPORT INFORMATION
  Report Type: 
  Country: None (occurrence: None)
  Receive Date: 20070712
  Receipt Date: 20070709
  Transmission Date: 20080115
  Serious: Yes (Hospitalization)
  Sender: FDA-Public Use
  Company Number: B0478286A

PATIENT
  Age: 64 Year
  Sex: Female

DRUGS (10)
  1. ZANTAC [Suspect]
     Dosage: 100MG TWICE PER DAY
     Dates: start: 20070613
  2. OMEPRAL [Concomitant]
     Dosage: 20MG PER DAY
     Route: 042
     Dates: start: 20070522, end: 20070612
  3. CIPROFLOXACIN [Concomitant]
     Route: 065
     Dates: start: 20070612, end: 20070615
  4. PRODIF [Concomitant]
     Route: 042
     Dates: start: 20070613, end: 20070618
  5. VANCOMYCIN HCL [Concomitant]
     Dosage: .5G TWICE PER DAY
     Route: 042
     Dates: start: 20070613, end: 20070613
  6. VANCOMYCIN HCL [Concomitant]
     Dosage: .5G PER DAY
     Route: 042
     Dates: start: 20070614, end: 20070614
  7. MAXIPIME [Concomitant]
     Route: 042
     Dates: start: 20070615, end: 20070618
  8. GRAN [Concomitant]
     Dates: start: 20070613, end: 20070620
  9. PREDONINE [Concomitant]
     Dosage: 20MG TWICE PER DAY
     Route: 065
     Dates: start: 20070620, end: 20070620
  10. PREDONINE [Concomitant]
     Dosage: 20MG PER DAY
     Route: 065
     Dates: start: 20070621, end: 20070621

REACTIONS (3)
  - C-REACTIVE PROTEIN INCREASED [None]
  - PANCYTOPENIA [None]
  - PYREXIA [None]
